FAERS Safety Report 14677852 (Version 1)
Quarter: 2018Q1

REPORT INFORMATION
  Report Type: Spontaneous
  Country: FR (occurrence: FR)
  Receive Date: 20180326
  Receipt Date: 20180326
  Transmission Date: 20180509
  Serious: Yes (Life-Threatening, Hospitalization)
  Sender: FDA-Public Use
  Company Number: FR-009507513-1803FRA007767

PATIENT
  Age: 79 Year
  Sex: Male
  Weight: 57 kg

DRUGS (1)
  1. KEYTRUDA [Suspect]
     Active Substance: PEMBROLIZUMAB
     Indication: BLADDER TRANSITIONAL CELL CARCINOMA
     Dosage: IN TOTAL
     Route: 041
     Dates: start: 20180214

REACTIONS (1)
  - Colitis ischaemic [Not Recovered/Not Resolved]

NARRATIVE: CASE EVENT DATE: 20180220
